FAERS Safety Report 7450472-3 (Version None)
Quarter: 2011Q2

REPORT INFORMATION
  Report Type: 
  Country: None (occurrence: None)
  Receive Date: 20110422
  Receipt Date: 20110408
  Transmission Date: 20111010
  Serious: Yes (Death, Life-Threatening, Hospitalization)
  Sender: FDA-Public Use
  Company Number: 2011001731

PATIENT
  Age: 55 Year
  Sex: Male

DRUGS (1)
  1. TARCEVA [Suspect]
     Indication: LUNG ADENOCARCINOMA
     Dosage: (150 MG, QD), ORAL
     Route: 048
     Dates: start: 20110202, end: 20110208

REACTIONS (13)
  - PULMONARY OEDEMA [None]
  - METASTASES TO LIVER [None]
  - METASTASES TO PLEURA [None]
  - BRONCHIECTASIS [None]
  - INTERSTITIAL LUNG DISEASE [None]
  - GASTROINTESTINAL HAEMORRHAGE [None]
  - ABDOMINAL MASS [None]
  - BLOOD UREA INCREASED [None]
  - NEOPLASM PROGRESSION [None]
  - METASTASES TO PERITONEUM [None]
  - PROTHROMBIN TIME PROLONGED [None]
  - NON-SMALL CELL LUNG CANCER [None]
  - METASTASES TO STOMACH [None]
